FAERS Safety Report 10032110 (Version 1)
Quarter: 2014Q1

REPORT INFORMATION
  Report Type: Report from Study
  Country: US (occurrence: US)
  Receive Date: 20140324
  Receipt Date: 20140324
  Transmission Date: 20141002
  Serious: Yes (Hospitalization)
  Sender: FDA-Public Use
  Company Number: US-ABBVIE-14P-163-1214053-00

PATIENT
  Age: 47 Year
  Sex: Male
  Weight: 79 kg

DRUGS (11)
  1. CREON [Suspect]
     Indication: PANCREATITIS CHRONIC
     Dosage: 3 CAPSULES WITH LARGE MEALS AND 2 CAPSULES WITH SNACKS
     Dates: start: 201210
  2. OXYCODONE [Concomitant]
     Indication: PAIN
  3. ATENOLOL [Concomitant]
     Indication: HYPERTENSION
  4. VITAMIN B12 [Concomitant]
     Indication: PRODUCT USED FOR UNKNOWN INDICATION
  5. FOLIC ACID [Concomitant]
     Indication: VITAMIN SUPPLEMENTATION
  6. POLYSACCHARIDE IRON [Concomitant]
     Indication: MINERAL SUPPLEMENTATION
  7. MIRTAZAPINE [Concomitant]
     Indication: ANTIDEPRESSANT THERAPY
  8. PANTOPRAZOLE [Concomitant]
     Indication: GASTROOESOPHAGEAL REFLUX DISEASE
  9. PROMETHAZINE [Concomitant]
     Indication: NAUSEA
  10. SIMVASTATIN [Concomitant]
     Indication: BLOOD CHOLESTEROL INCREASED
  11. ZINC SULFATE [Concomitant]
     Indication: MINERAL SUPPLEMENTATION

REACTIONS (6)
  - Hypernatraemia [Recovered/Resolved]
  - Pancreatitis [Recovered/Resolved]
  - Pancreatitis acute [Recovered/Resolved]
  - Pancreatitis acute [Recovered/Resolved]
  - Leukopenia [Recovered/Resolved]
  - Pancreatitis acute [Recovered/Resolved]
